FAERS Safety Report 4641264-9 (Version None)
Quarter: 2005Q2

REPORT INFORMATION
  Report Type: 
  Country: None (occurrence: None)
  Receive Date: 20050419
  Receipt Date: 20050406
  Transmission Date: 20051028
  Serious: Yes (Hospitalization)
  Sender: FDA-Public Use
  Company Number: 05P-056-0295024-01

PATIENT
  Age: 58 Year
  Sex: Female
  Weight: 55 kg

DRUGS (3)
  1. HUMIRA [Suspect]
     Indication: RHEUMATOID ARTHRITIS
     Dosage: 40 MG, 1 IN 2 WK, SUBCUTANEOUS
     Route: 058
     Dates: start: 20040701, end: 20050307
  2. HYDROXYCHLOROQUINE PHOSPHATE [Concomitant]
  3. FARKALP [Concomitant]

REACTIONS (4)
  - COUGH [None]
  - LUNG NEOPLASM [None]
  - PYREXIA [None]
  - VIRAL INFECTION [None]
